FAERS Safety Report 9521950 (Version 2)
Quarter: 2014Q1

REPORT INFORMATION
  Report Type: Spontaneous
  Country: US (occurrence: None)
  Receive Date: 20130305
  Receipt Date: 20140306
  Transmission Date: 20141002
  Serious: Yes (Hospitalization, Other)
  Sender: FDA-Public Use
  Company Number: 163-21880-12081469

PATIENT
  Age: 80 Year
  Sex: Female
  Weight: 55.61 kg

DRUGS (7)
  1. REVLIMID [Suspect]
     Indication: PLASMA CELL MYELOMA
     Route: 048
     Dates: start: 201107, end: 2011
  2. LOVENOX (HEPARIN-FRACTION, SODIUM SALT) (UNKNOWN) [Concomitant]
  3. COUMADIN(WARFARIN SODIUM)(UNKNOWN) [Concomitant]
  4. LASIX(FUROSEMIDE)(UNKNOWN) [Concomitant]
  5. TYLENOL(PARACETAMOL)(UNKNOWN) [Concomitant]
  6. PROCRIT(ERYTHROPOIETIN)(INJECTION) [Concomitant]
  7. BLOOD(BLOOD TRANSFUSION, AUXILIARY PRODUCTS)(UNKNOWN) [Concomitant]

REACTIONS (5)
  - Thrombosis [None]
  - Thrombosis [None]
  - Pain in extremity [None]
  - Deep vein thrombosis [None]
  - Pancytopenia [None]
